FAERS Safety Report 4625602-9 (Version None)
Quarter: 2005Q1

REPORT INFORMATION
  Report Type: 
  Country: None (occurrence: None)
  Receive Date: 20050331
  Receipt Date: 20050331
  Transmission Date: 20050727
  Serious: Yes (Death)
  Sender: FDA-Public Use
  Company Number: None

PATIENT
  Sex: Female
  Weight: 57.7 kg

DRUGS (4)
  1. CYCLOPHOSPHAMIDE [Suspect]
     Dosage: 650 MG/M2 IV OVER 30 MIN ON DAYS 1,15 AND 29
     Route: 042
     Dates: start: 20041210
  2. CYTARABINE [Suspect]
     Dosage: 75 MG/M2 IV OVER 30 MIN QD ON DAYS 1-4, 8-11, 15-18, AND 22-25
  3. MERCAPTOPURINE [Suspect]
     Dosage: 60 MG/M2 PO QD FOR 28 DAYS
     Route: 048
  4. METHOTREXATE [Suspect]
     Dosage: 12.5 MG IT ON DAYS 1, 8, 15 AND 22

REACTIONS (8)
  - BLOOD DISORDER [None]
  - CANDIDA SEPSIS [None]
  - CARDIOPULMONARY FAILURE [None]
  - FEBRILE NEUTROPENIA [None]
  - HYPOTENSION [None]
  - RENAL FAILURE [None]
  - SEPSIS [None]
  - STAPHYLOCOCCAL INFECTION [None]
